FAERS Safety Report 6450185-0 (Version None)
Quarter: 2009Q4

REPORT INFORMATION
  Report Type: 
  Country: None (occurrence: None)
  Receive Date: 20091123
  Receipt Date: 20091109
  Transmission Date: 20100525
  Serious: Yes (Hospitalization, Other)
  Sender: FDA-Public Use
  Company Number: FR-ROCHE-667381

PATIENT
  Age: 40 Year
  Sex: Female

DRUGS (7)
  1. ENFUVIRTIDE [Suspect]
     Indication: HIV INFECTION
     Route: 065
  2. ABACAVIR [Suspect]
     Indication: HIV INFECTION
     Route: 065
  3. ABACAVIR [Suspect]
     Route: 065
  4. ABACAVIR [Suspect]
     Route: 065
  5. LAMIVUDINE [Suspect]
     Indication: HIV INFECTION
     Route: 065
  6. LAMIVUDINE [Suspect]
     Route: 065
  7. LAMIVUDINE [Suspect]
     Route: 065

REACTIONS (6)
  - ACUTE RESPIRATORY FAILURE [None]
  - DISTURBANCE IN ATTENTION [None]
  - HYPERSENSITIVITY [None]
  - LACTIC ACIDOSIS [None]
  - RENAL FAILURE [None]
  - RHABDOMYOLYSIS [None]
